FAERS Safety Report 6556460-3 (Version None)
Quarter: 2010Q1

REPORT INFORMATION
  Report Type: 
  Country: None (occurrence: None)
  Receive Date: 20100128
  Receipt Date: 20100121
  Transmission Date: 20100710
  Serious: No
  Sender: FDA-Public Use
  Company Number: B0626658A

PATIENT
  Sex: Male

DRUGS (2)
  1. NIQUITIN [Suspect]
     Dosage: 1PAT PER DAY
     Route: 062
     Dates: start: 20090803, end: 20091117
  2. PARACETAMOL [Concomitant]

REACTIONS (7)
  - ABDOMINAL PAIN [None]
  - ARTHRITIS [None]
  - BACK PAIN [None]
  - BLOOD CHOLESTEROL INCREASED [None]
  - BLOOD GLUCOSE INCREASED [None]
  - DEPRESSED MOOD [None]
  - HYPERTENSION [None]
